FAERS Safety Report 5272489-X (Version None)
Quarter: 2007Q1

REPORT INFORMATION
  Report Type: 
  Country: None (occurrence: None)
  Receive Date: 20070322
  Receipt Date: 20060216
  Transmission Date: 20070707
  Serious: No
  Sender: FDA-Public Use
  Company Number: US-BRISTOL-MYERS SQUIBB COMPANY-13286661

PATIENT
  Age: 45 Year
  Sex: Female
  Weight: 62 kg

DRUGS (3)
  1. KENALOG [Suspect]
     Indication: INTERVERTEBRAL DISC PROTRUSION
     Dates: start: 20051215
  2. ISOVUE-128 [Concomitant]
     Indication: INTERVERTEBRAL DISC PROTRUSION
     Dates: start: 20051215
  3. REMERON [Concomitant]

REACTIONS (3)
  - CUSHINGOID [None]
  - VAGINAL HAEMORRHAGE [None]
  - WEIGHT INCREASED [None]
